FAERS Safety Report 6964486-0 (Version None)
Quarter: 2010Q3

REPORT INFORMATION
  Report Type: 
  Country: None (occurrence: None)
  Receive Date: 20100903
  Receipt Date: 20100824
  Transmission Date: 20110219
  Serious: Yes (Hospitalization, Other)
  Sender: FDA-Public Use
  Company Number: JP-PFIZER INC-2010094294

PATIENT
  Age: 80 Year
  Sex: Male
  Weight: 60 kg

DRUGS (9)
  1. LYRICA [Suspect]
     Indication: POST HERPETIC NEURALGIA
     Dosage: 75 MG, 2X/DAY
     Route: 048
     Dates: start: 20100701, end: 20100722
  2. NORVASC [Concomitant]
     Indication: HYPERTENSION
     Dosage: 5 MG, 2X/DAY
     Route: 048
     Dates: start: 20040423
  3. FERROMIA [Concomitant]
     Indication: IRON DEFICIENCY ANAEMIA
     Dosage: 50 MG, 2X/DAY
     Route: 048
     Dates: start: 20040423
  4. PREDONINE [Concomitant]
     Indication: ASTHMA
     Dosage: 5 MG, 2X/DAY
     Route: 048
     Dates: start: 20080627
  5. MUCOSOLVAN [Concomitant]
     Indication: BRONCHITIS CHRONIC
     Dosage: 15 MG, 3X/DAY
     Route: 048
     Dates: start: 20070913
  6. HARNAL [Concomitant]
     Indication: BENIGN PROSTATIC HYPERPLASIA
     Dosage: 0.2 MG, 1X/DAY
     Route: 048
     Dates: start: 20040202
  7. HOKUNALIN [Concomitant]
     Indication: BRONCHITIS CHRONIC
     Dosage: 2 MG, 1X/DAY
     Route: 048
     Dates: start: 20070913
  8. TAKEPRON [Concomitant]
     Indication: REFLUX OESOPHAGITIS
     Dosage: 15 MG, 1X/DAY
     Route: 048
     Dates: start: 20100304
  9. GOODMIN [Concomitant]
     Indication: INSOMNIA
     Dosage: 0.25 MG, 1X/DAY
     Route: 048
     Dates: start: 20061222

REACTIONS (8)
  - BLOOD PRESSURE DECREASED [None]
  - CONSTIPATION [None]
  - DECREASED APPETITE [None]
  - DEHYDRATION [None]
  - GASTROINTESTINAL HAEMORRHAGE [None]
  - RECTAL ULCER [None]
  - RESPIRATORY DISORDER [None]
  - SOMNOLENCE [None]
